FAERS Safety Report 7399503-X (Version None)
Quarter: 2011Q2

REPORT INFORMATION
  Report Type: 
  Country: None (occurrence: None)
  Receive Date: 20110407
  Receipt Date: 20110406
  Transmission Date: 20111010
  Serious: Yes (Death)
  Sender: FDA-Public Use
  Company Number: US-ABBOTT-11P-163-0704039-00

PATIENT
  Sex: Female
  Weight: 65.376 kg

DRUGS (4)
  1. HUMIRA [Suspect]
     Indication: RHEUMATOID ARTHRITIS
     Dates: start: 20081101, end: 20100601
  2. ACTONEL [Concomitant]
     Indication: OSTEOPENIA
     Dates: start: 20021101, end: 20100601
  3. METHOTREXATE [Concomitant]
     Indication: RHEUMATOID ARTHRITIS
     Dates: start: 19980401, end: 20100601
  4. METOPROLOL [Concomitant]
     Indication: PRODUCT USED FOR UNKNOWN INDICATION
     Dates: start: 20040301, end: 20100601

REACTIONS (1)
  - MYOCARDIAL INFARCTION [None]
